FAERS Safety Report 23017952 (Version 3)
Quarter: 2023Q4

REPORT INFORMATION
  Report Type: Other
  Country: US (occurrence: None)
  Receive Date: 20231003
  Receipt Date: 20231110
  Transmission Date: 20240109
  Serious: Yes (Other)
  Sender: FDA-Public Use
  Company Number: US-ROCHE-3288310

PATIENT
  Age: 51 Year
  Sex: Female
  Weight: 75.818 kg

DRUGS (33)
  1. XOLAIR [Suspect]
     Active Substance: OMALIZUMAB
     Indication: Asthma
     Route: 058
     Dates: start: 20181024
  2. XOLAIR [Suspect]
     Active Substance: OMALIZUMAB
  3. XOLAIR [Suspect]
     Active Substance: OMALIZUMAB
     Indication: Asthma
     Dosage: ANTICIPATED DATE OF TREATMENT: 15/AUG/2023, LAST INJECTION: 25/JUL/2023
     Route: 058
  4. XOLAIR [Suspect]
     Active Substance: OMALIZUMAB
  5. XOLAIR [Suspect]
     Active Substance: OMALIZUMAB
     Indication: Seasonal allergy
  6. XOLAIR [Suspect]
     Active Substance: OMALIZUMAB
  7. XOPENEX [Concomitant]
     Active Substance: LEVALBUTEROL HYDROCHLORIDE
  8. TIROSINT [Concomitant]
     Active Substance: LEVOTHYROXINE SODIUM
  9. TRIAMCINOLONE ACETONIDE [Concomitant]
     Active Substance: TRIAMCINOLONE ACETONIDE
  10. REPAGLINIDE [Concomitant]
     Active Substance: REPAGLINIDE
  11. NASACORT [Concomitant]
     Active Substance: TRIAMCINOLONE ACETONIDE
  12. MUCINEX [Concomitant]
     Active Substance: GUAIFENESIN
  13. MONTELUKAST SODIUM [Concomitant]
     Active Substance: MONTELUKAST SODIUM
  14. LOSARTAN [Concomitant]
     Active Substance: LOSARTAN
  15. LEVALBUTEROL [Concomitant]
     Active Substance: LEVALBUTEROL
  16. IPRATROPIUM BROMIDE [Concomitant]
     Active Substance: IPRATROPIUM BROMIDE\IPRATROPIUM BROMIDE ANHYDROUS
  17. HYDROCORTISONE [Concomitant]
     Active Substance: HYDROCORTISONE
  18. FERROUS SULFATE [Concomitant]
     Active Substance: FERROUS SULFATE
  19. DETROL LA [Concomitant]
     Active Substance: TOLTERODINE TARTRATE
  20. VITAMIN B12 [Concomitant]
     Active Substance: CYANOCOBALAMIN
  21. ALLEGRA ALLERGY [Concomitant]
     Active Substance: FEXOFENADINE HYDROCHLORIDE
  22. AUVI-Q [Concomitant]
     Active Substance: EPINEPHRINE
  23. ACARBOSE [Concomitant]
     Active Substance: ACARBOSE
  24. ALLEGRA-D [Concomitant]
     Active Substance: FEXOFENADINE HYDROCHLORIDE\PSEUDOEPHEDRINE HYDROCHLORIDE
  25. VITAMIN D3 [Concomitant]
     Active Substance: CHOLECALCIFEROL
  26. SINGULAIR [Concomitant]
     Active Substance: MONTELUKAST SODIUM
  27. DULERA [Concomitant]
     Active Substance: FORMOTEROL FUMARATE DIHYDRATE\MOMETASONE FUROATE
  28. CALCIUM CITRATE [Concomitant]
     Active Substance: CALCIUM CITRATE
  29. BELVIQ [Concomitant]
     Active Substance: LORCASERIN HYDROCHLORIDE
  30. FLUCONAZOLE [Concomitant]
     Active Substance: FLUCONAZOLE
  31. FEXOFENADINE [Concomitant]
     Active Substance: FEXOFENADINE HYDROCHLORIDE
  32. EPIPEN [Concomitant]
     Active Substance: EPINEPHRINE
  33. DIFLUCAN [Concomitant]
     Active Substance: FLUCONAZOLE

REACTIONS (8)
  - Nephrolithiasis [Unknown]
  - Anaphylactic reaction [Unknown]
  - Off label use [Unknown]
  - Musculoskeletal chest pain [Unknown]
  - COVID-19 [Recovered/Resolved]
  - Pruritus [Unknown]
  - Anxiety disorder [Unknown]
  - Fungal infection [Recovered/Resolved]

NARRATIVE: CASE EVENT DATE: 20190613
